FAERS Safety Report 8238163-2 (Version None)
Quarter: 2012Q1

REPORT INFORMATION
  Report Type: 
  Country: None (occurrence: None)
  Receive Date: 20120327
  Receipt Date: 20120320
  Transmission Date: 20120608
  Serious: Yes (Life-Threatening, Hospitalization, Other)
  Sender: FDA-Public Use
  Company Number: GB-JNJFOC-20120302852

PATIENT
  Age: 56 Year
  Sex: Male

DRUGS (6)
  1. ACETAMINOPHEN [Suspect]
     Route: 048
  2. TRAMADOL HCL [Suspect]
     Indication: INTENTIONAL OVERDOSE
     Route: 048
  3. ACETAMINOPHEN [Suspect]
     Indication: PRODUCT USED FOR UNKNOWN INDICATION
     Route: 048
  4. FLUTICASONE PROPIONATE/SALMETEROL [Concomitant]
     Indication: CHRONIC OBSTRUCTIVE PULMONARY DISEASE
     Route: 055
  5. SPIRIVA [Concomitant]
     Indication: CHRONIC OBSTRUCTIVE PULMONARY DISEASE
     Route: 055
  6. DIHYDROCODEINE BITARTRATE INJ [Suspect]
     Indication: PRODUCT USED FOR UNKNOWN INDICATION
     Route: 048

REACTIONS (5)
  - HEART RATE INCREASED [None]
  - RESPIRATORY FAILURE [None]
  - INAPPROPRIATE ANTIDIURETIC HORMONE SECRETION [None]
  - INTENTIONAL OVERDOSE [None]
  - SOMNOLENCE [None]
